FAERS Safety Report 8191814-3 (Version None)
Quarter: 2012Q1

REPORT INFORMATION
  Report Type: 
  Country: None (occurrence: None)
  Receive Date: 20120307
  Receipt Date: 20120228
  Transmission Date: 20120608
  Serious: Yes (Hospitalization)
  Sender: FDA-Public Use
  Company Number: US-BRISTOL-MYERS SQUIBB COMPANY-15937832

PATIENT
  Age: 71 Year
  Sex: Female
  Weight: 76 kg

DRUGS (2)
  1. CARBOPLATIN [Suspect]
     Indication: NON-SMALL CELL LUNG CANCER
     Dosage: LAST ADMINISTERED DOSE:12JUL11 NO OF COURSES: 5
     Dates: start: 20110614
  2. PACLITAXEL [Suspect]
     Indication: NON-SMALL CELL LUNG CANCER
     Dosage: LAST ADMINISTERED DOSE:12JUL11 NO OF COURSES: 5
     Dates: start: 20110614

REACTIONS (3)
  - VENTRICULAR ARRHYTHMIA [None]
  - ANAEMIA [None]
  - FEBRILE NEUTROPENIA [None]
